FAERS Safety Report 9419057 (Version 1)
Quarter: 2013Q3

REPORT INFORMATION
  Report Type: Report from Study
  Country: AR (occurrence: AR)
  Receive Date: 20130725
  Receipt Date: 20130725
  Transmission Date: 20140515
  Serious: Yes (Other)
  Sender: FDA-Public Use
  Company Number: PHHY2013AR078733

PATIENT
  Sex: Female

DRUGS (2)
  1. RASILEZ D [Suspect]
     Indication: HYPERTENSION
     Dosage: 0.5 DF, (300 MG ALISK/ 12,5 MG HYDRO) A DAY
     Route: 048
     Dates: start: 2011, end: 201307
  2. DIOVAN D [Suspect]
     Dosage: 1 DF, (160 MG VALS/ UNK HYDRO) PER DAY
     Route: 048
     Dates: start: 20130719

REACTIONS (4)
  - Bronchitis [Not Recovered/Not Resolved]
  - Nasopharyngitis [Not Recovered/Not Resolved]
  - Nasal congestion [Not Recovered/Not Resolved]
  - Pyrexia [Recovered/Resolved]
